FAERS Safety Report 8494453-X (Version None)
Quarter: 2012Q3

REPORT INFORMATION
  Report Type: 
  Country: None (occurrence: None)
  Receive Date: 20120709
  Receipt Date: 20120625
  Transmission Date: 20120928
  Serious: No
  Sender: FDA-Public Use
  Company Number: US-JNJFOC-20120612899

PATIENT
  Sex: Female
  Weight: 62.14 kg

DRUGS (7)
  1. DURAGESIC-100 [Suspect]
     Route: 062
     Dates: start: 20020101
  2. FENTANYL-100 [Suspect]
     Route: 062
  3. METHIMAZOLE [Concomitant]
     Indication: THYROID FUNCTION TEST ABNORMAL
     Route: 048
  4. METOPROLOL TARTRATE [Concomitant]
     Indication: CARDIAC DISORDER
     Route: 065
     Dates: start: 20110101
  5. FENTANYL-100 [Suspect]
     Indication: BACK PAIN
     Route: 062
  6. METHIMAZOLE [Concomitant]
     Route: 048
     Dates: start: 20120101, end: 20120601
  7. DURAGESIC-100 [Suspect]
     Indication: BACK PAIN
     Route: 062
     Dates: start: 20020101

REACTIONS (4)
  - APPLICATION SITE PRURITUS [None]
  - WRONG TECHNIQUE IN DRUG USAGE PROCESS [None]
  - THYROID FUNCTION TEST ABNORMAL [None]
  - INAPPROPRIATE SCHEDULE OF DRUG ADMINISTRATION [None]
